FAERS Safety Report 7989853-8 (Version None)
Quarter: 2011Q4

REPORT INFORMATION
  Report Type: 
  Country: None (occurrence: None)
  Receive Date: 20111219
  Receipt Date: 20110408
  Transmission Date: 20120403
  Serious: No
  Sender: FDA-Public Use
  Company Number: US-ASTRAZENECA-2009SE05872

PATIENT
  Sex: Female

DRUGS (6)
  1. METFORMIN HCL [Concomitant]
  2. CYMBALTA [Concomitant]
  3. LISINOPRIL [Concomitant]
  4. FENOFIBRATE [Concomitant]
  5. CRESTOR [Suspect]
     Route: 048
  6. NO MATCH [Concomitant]

REACTIONS (4)
  - GASTROOESOPHAGEAL REFLUX DISEASE [None]
  - NAUSEA [None]
  - BLOOD CHOLESTEROL INCREASED [None]
  - DRUG INEFFECTIVE [None]
